FAERS Safety Report 9819398 (Version 2)
Quarter: 2014Q2

REPORT INFORMATION
  Report Type: Spontaneous
  Country: US (occurrence: US)
  Receive Date: 20140115
  Receipt Date: 20140612
  Transmission Date: 20141212
  Serious: Yes (Death, Life-Threatening, Hospitalization, Other)
  Sender: FDA-Public Use
  Company Number: US-MERCK-1401USA006268

PATIENT
  Sex: Female
  Weight: 136.5 kg

DRUGS (1)
  1. JANUVIA [Suspect]
     Indication: TYPE 2 DIABETES MELLITUS
     Dosage: 100 MG, QD
     Route: 048
     Dates: start: 20120118, end: 20121227

REACTIONS (28)
  - Adenocarcinoma pancreas [Fatal]
  - Pancreaticoduodenectomy [Unknown]
  - Myocardial infarction [Unknown]
  - Surgery [Unknown]
  - Biliary neoplasm [Unknown]
  - Hypotension [Unknown]
  - Fall [Unknown]
  - Dysgeusia [Unknown]
  - Chromaturia [Unknown]
  - Stress [Unknown]
  - Dyspnoea [Unknown]
  - Arrhythmia [Unknown]
  - Arthritis [Unknown]
  - Chest pain [Unknown]
  - Barrett^s oesophagus [Unknown]
  - Gastroenteritis [Unknown]
  - Hyperlipidaemia [Unknown]
  - Colitis [Unknown]
  - Depression [Unknown]
  - Appendicectomy [Unknown]
  - Bile duct obstruction [Unknown]
  - Bile duct stent insertion [Unknown]
  - Dyspepsia [Unknown]
  - Coronary artery disease [Unknown]
  - Radiotherapy to pancreas [Unknown]
  - Hypocalcaemia [Unknown]
  - Dizziness [Unknown]
  - Drug ineffective [Unknown]
